FAERS Safety Report 14776236 (Version 1)
Quarter: 2018Q2

REPORT INFORMATION
  Report Type: Spontaneous
  Country: US (occurrence: US)
  Receive Date: 20180418
  Receipt Date: 20180418
  Transmission Date: 20180711
  Serious: No
  Sender: FDA-Public Use
  Company Number: US-ASCENT PHARMACEUTICALS, INC.-2045970

PATIENT
  Age: 11 Year
  Sex: Male

DRUGS (1)
  1. METHYLPHENIDATE HYDROCHLORIDE. [Suspect]
     Active Substance: METHYLPHENIDATE HYDROCHLORIDE
     Indication: ATTENTION DEFICIT/HYPERACTIVITY DISORDER
     Route: 048
     Dates: start: 20180131, end: 20180227

REACTIONS (5)
  - Disturbance in attention [Recovered/Resolved]
  - Trichotillomania [Recovered/Resolved]
  - Pruritus [Recovered/Resolved]
  - Nasal pruritus [Recovered/Resolved]
  - Drug ineffective [Recovered/Resolved]
